FAERS Safety Report 25623629 (Version 1)
Quarter: 2025Q3

REPORT INFORMATION
  Report Type: Spontaneous
  Country: US (occurrence: None)
  Receive Date: 20250730
  Receipt Date: 20250730
  Transmission Date: 20251020
  Serious: No
  Sender: FDA-CTU
  Company Number: None

PATIENT
  Age: 21 Year
  Sex: Female
  Weight: 69.48 kg

DRUGS (1)
  1. JASMIEL [Suspect]
     Active Substance: DROSPIRENONE\ETHINYL ESTRADIOL
     Indication: Polycystic ovarian syndrome
     Dosage: 1 TOT- TOTAL DAILY ORAL
     Route: 048
     Dates: start: 20220621, end: 20250224

REACTIONS (3)
  - Mood altered [None]
  - Vaginal haemorrhage [None]
  - Stress [None]

NARRATIVE: CASE EVENT DATE: 20250224
